FAERS Safety Report 11091662 (Version 2)
Quarter: 2015Q2

REPORT INFORMATION
  Report Type: Report from Study
  Country: US (occurrence: US)
  Receive Date: 20150505
  Receipt Date: 20150529
  Transmission Date: 20150821
  Serious: Yes (Death)
  Sender: FDA-Public Use
  Company Number: US-SA-2015SA058887

PATIENT
  Age: 59 Year
  Sex: Female
  Weight: 108 kg

DRUGS (38)
  1. CAMPATH [Suspect]
     Active Substance: ALEMTUZUMAB
     Indication: LYMPHOPROLIFERATIVE DISORDER
     Route: 041
     Dates: start: 20140819, end: 20140819
  2. INSULIN LISPRO [Concomitant]
     Active Substance: INSULIN LISPRO
     Dates: start: 20140805, end: 20140823
  3. INSULIN, REGULAR [Concomitant]
     Active Substance: INSULIN NOS
     Dosage: DOSE:10 UNIT(S)
     Dates: start: 20140823, end: 20140823
  4. CAMPATH [Suspect]
     Active Substance: ALEMTUZUMAB
     Indication: LYMPHOPROLIFERATIVE DISORDER
     Route: 041
     Dates: start: 20140823, end: 20140823
  5. BISACODYL. [Concomitant]
     Active Substance: BISACODYL
     Indication: CONSTIPATION
     Dosage: Q24H PRN
     Dates: start: 20140809, end: 20140823
  6. HYDROCORTISONE SODIUM SUCCINATE [Concomitant]
     Active Substance: HYDROCORTISONE SODIUM SUCCINATE
     Indication: PREMEDICATION
     Route: 042
     Dates: start: 20140805, end: 20140815
  7. PREDNISONE. [Concomitant]
     Active Substance: PREDNISONE
     Indication: PREMEDICATION
     Dates: start: 20140817, end: 20140818
  8. URSODIOL. [Concomitant]
     Active Substance: URSODIOL
     Route: 048
     Dates: start: 20140813, end: 20140823
  9. ADENOSINE. [Concomitant]
     Active Substance: ADENOSINE
     Dates: start: 20140823, end: 20140823
  10. AMIODARONE [Concomitant]
     Active Substance: AMIODARONE
     Route: 042
     Dates: start: 20140823, end: 20140823
  11. HYDROXYZINE [Concomitant]
     Active Substance: HYDROXYZINE\HYDROXYZINE HYDROCHLORIDE
     Dates: start: 20140815, end: 20140823
  12. LACTULOSE. [Concomitant]
     Active Substance: LACTULOSE
     Route: 048
     Dates: end: 20140823
  13. PHENYLEPHRINE [Concomitant]
     Active Substance: PHENYLEPHRINE\PHENYLEPHRINE HYDROCHLORIDE
     Route: 042
     Dates: start: 20140823, end: 20140823
  14. NORCO [Concomitant]
     Active Substance: ACETAMINOPHEN\HYDROCODONE BITARTRATE
     Dosage: EVERY 4 HOURS
     Dates: end: 20140823
  15. HUMULIN NOS [Concomitant]
     Active Substance: INSULIN HUMAN
     Dates: end: 20140823
  16. ACARBOSE. [Concomitant]
     Active Substance: ACARBOSE
     Dates: start: 20140805, end: 20140806
  17. ALLOPURINOL. [Concomitant]
     Active Substance: ALLOPURINOL
     Dates: start: 20140815, end: 20140819
  18. COLESTYRAMINE [Concomitant]
     Active Substance: CHOLESTYRAMINE
     Route: 048
     Dates: start: 20140813, end: 20140823
  19. EPINEPHRINE. [Concomitant]
     Active Substance: EPINEPHRINE
     Dates: start: 20140823, end: 20140823
  20. INSULIN GLARGINE [Concomitant]
     Active Substance: INSULIN GLARGINE
     Dosage: DOSE:30 UNIT(S)
     Dates: start: 20140814, end: 20140816
  21. SODIUM CHLORIDE. [Concomitant]
     Active Substance: SODIUM CHLORIDE
     Dates: start: 20140816, end: 20140816
  22. VASOPRESSIN. [Concomitant]
     Active Substance: VASOPRESSIN
     Dosage: PER HOUR
     Dates: start: 20140823, end: 20140823
  23. LANTUS [Concomitant]
     Active Substance: INSULIN GLARGINE
     Dosage: DOSE:35 UNIT(S)
     Dates: end: 20140823
  24. CAMPATH [Suspect]
     Active Substance: ALEMTUZUMAB
     Indication: LYMPHOPROLIFERATIVE DISORDER
     Route: 041
     Dates: start: 20140816, end: 20140816
  25. VANCOMYCIN [Concomitant]
     Active Substance: VANCOMYCIN
     Dates: start: 20140805, end: 20140823
  26. ATENOLOL. [Concomitant]
     Active Substance: ATENOLOL
     Route: 048
     Dates: end: 20140823
  27. CAMPATH [Suspect]
     Active Substance: ALEMTUZUMAB
     Indication: LYMPHOPROLIFERATIVE DISORDER
     Route: 041
     Dates: start: 20140821, end: 20140821
  28. ACETAMINOPHEN. [Concomitant]
     Active Substance: ACETAMINOPHEN
     Indication: PREMEDICATION
     Dates: start: 20140819, end: 20140823
  29. DIPHENHYDRAMINE [Concomitant]
     Active Substance: DIPHENHYDRAMINE
     Indication: PREMEDICATION
     Dates: start: 20140818, end: 20140823
  30. IBUPROFEN. [Concomitant]
     Active Substance: IBUPROFEN
     Indication: PAIN
     Route: 048
     Dates: start: 20140810, end: 20140823
  31. NALOXONE [Concomitant]
     Active Substance: NALOXONE
     Route: 042
     Dates: start: 20140816, end: 20140823
  32. METHYLPREDNISOLONE SODIUM SUCCINATE. [Concomitant]
     Active Substance: METHYLPREDNISOLONE SODIUM SUCCINATE
     Indication: PREMEDICATION
     Dosage: IVP
     Dates: start: 20140819, end: 20140823
  33. RIFAXIMIN [Concomitant]
     Active Substance: RIFAXIMIN
     Route: 048
     Dates: start: 20140818, end: 20140823
  34. SODIUM BICARBONATE. [Concomitant]
     Active Substance: SODIUM BICARBONATE
     Route: 042
     Dates: start: 20140823, end: 20140823
  35. MOTRIN [Concomitant]
     Active Substance: IBUPROFEN
     Route: 048
     Dates: end: 20140823
  36. ALBUMIN [Concomitant]
     Active Substance: ALBUMIN (HUMAN)
     Indication: HYPOALBUMINAEMIA
     Route: 042
     Dates: start: 20140818, end: 20140819
  37. NOREPINEPHRINE [Concomitant]
     Active Substance: NOREPINEPHRINE\NOREPINEPHRINE BITARTRATE
     Dosage: PER MIN
     Dates: start: 20140823, end: 20140823
  38. TAZOBACTAM/PIPERACILLIN [Concomitant]
     Dosage: 3.375 Q6H, EIZ 4.5 Q8H
     Dates: start: 20140805, end: 20140823

REACTIONS (3)
  - Pulmonary embolism [Fatal]
  - Jugular vein thrombosis [Fatal]
  - Neoplasm malignant [Fatal]

NARRATIVE: CASE EVENT DATE: 201408
